FAERS Safety Report 6733504-7 (Version None)
Quarter: 2010Q2

REPORT INFORMATION
  Report Type: 
  Country: None (occurrence: None)
  Receive Date: 20100518
  Receipt Date: 20100504
  Transmission Date: 20101027
  Serious: Yes (Disabling, Other)
  Sender: FDA-Public Use
  Company Number: ACO-00802-2010

PATIENT
  Sex: Male
  Weight: 87.0906 kg

DRUGS (3)
  1. AMPYRA [Suspect]
     Indication: MULTIPLE SCLEROSIS
     Dosage: 10 MG BID ORAL
     Route: 048
     Dates: start: 20100422
  2. ABILIFY [Suspect]
     Indication: DRUG USE FOR UNKNOWN INDICATION
     Dosage: 0.2 MG ORAL, 0.7 MG ORAL
     Route: 048
     Dates: start: 20100301, end: 20100414
  3. ABILIFY [Suspect]
     Indication: DRUG USE FOR UNKNOWN INDICATION
     Dosage: 0.2 MG ORAL, 0.7 MG ORAL
     Route: 048
     Dates: start: 20100414

REACTIONS (1)
  - ERECTILE DYSFUNCTION [None]
